FAERS Safety Report 24585206 (Version 3)
Quarter: 2024Q4

REPORT INFORMATION
  Report Type: Spontaneous
  Country: US (occurrence: US)
  Receive Date: 20241106
  Receipt Date: 20241113
  Transmission Date: 20250115
  Serious: No
  Sender: PFIZER
  Company Number: US-PFIZER INC-202400293848

PATIENT
  Age: 76 Year
  Sex: Female
  Weight: 82.993 kg

DRUGS (2)
  1. IBRANCE [Suspect]
     Active Substance: PALBOCICLIB
     Indication: Breast cancer metastatic
     Dosage: ONCE DAILY. TAKE FOR 21 DAYS ON, FOLLOWED BY A 7 DAYS OFF. TAKE WITH OR WITHOUT FOOD
     Route: 048
     Dates: start: 2024
  2. IBRANCE [Suspect]
     Active Substance: PALBOCICLIB
     Dosage: 21 DAYS ON, FOLLOWED BY 7 DAYS OFF. TAKE WITH OR WITHOUT FOOD
     Route: 048
     Dates: start: 2024

REACTIONS (1)
  - White blood cell count decreased [Unknown]

NARRATIVE: CASE EVENT DATE: 20240101
